FAERS Safety Report 16566886 (Version 1)
Quarter: 2019Q3

REPORT INFORMATION
  Report Type: Spontaneous
  Country: US (occurrence: US)
  Receive Date: 20190712
  Receipt Date: 20190712
  Transmission Date: 20191004
  Serious: Yes (Hospitalization)
  Sender: FDA-Public Use
  Company Number: US-PERRIGO-19US008155

PATIENT
  Age: 16 Year
  Sex: Male

DRUGS (3)
  1. FLUVOXAMINE [Concomitant]
     Active Substance: FLUVOXAMINE
     Indication: SUICIDE ATTEMPT
     Dosage: UNKNOWN, SINGLE
     Route: 048
  2. CLOMIPRAMINE [Concomitant]
     Active Substance: CLOMIPRAMINE
     Indication: SUICIDE ATTEMPT
     Dosage: UNKNOWN, SINGLE
     Route: 048
  3. ACETAMINOPHEN. [Suspect]
     Active Substance: ACETAMINOPHEN
     Indication: SUICIDE ATTEMPT
     Dosage: UNKNOWN, SINGLE
     Route: 048

REACTIONS (2)
  - Haemolytic anaemia [Unknown]
  - Intentional overdose [Recovered/Resolved]
